FAERS Safety Report 9747137 (Version 4)
Quarter: 2013Q4

REPORT INFORMATION
  Report Type: Spontaneous
  Country: JP (occurrence: JP)
  Receive Date: 20131211
  Receipt Date: 20131231
  Transmission Date: 20140711
  Serious: Yes (Death, Hospitalization)
  Sender: FDA-Public Use
  Company Number: JP-BRISTOL-MYERS SQUIBB COMPANY-19884204

PATIENT
  Age: 80 Year
  Sex: Male
  Weight: 52 kg

DRUGS (2)
  1. ERBITUX SOLN FOR INF 5MG/ML [Suspect]
     Indication: COLON CANCER
     Dosage: 2NF INF:13SEP13
     Route: 041
     Dates: start: 20130828, end: 20131107
  2. IRINOTECAN [Suspect]
     Indication: COLON CANCER
     Dosage: 28AUG13-07NOV13:233MG:71DAYS?13SEP13-13SEP13:187MG?11OCT13-11OCT13:120MG
     Route: 041
     Dates: start: 20130828, end: 20131107

REACTIONS (10)
  - Pneumonia [Fatal]
  - Febrile neutropenia [Fatal]
  - White blood cell count decreased [Fatal]
  - Neutrophil count decreased [Fatal]
  - Weight decreased [Not Recovered/Not Resolved]
  - Malaise [Not Recovered/Not Resolved]
  - Decreased appetite [Unknown]
  - Vomiting [Not Recovered/Not Resolved]
  - Diarrhoea [Not Recovered/Not Resolved]
  - Nausea [Not Recovered/Not Resolved]
